FAERS Safety Report 11518811 (Version 1)
Quarter: 2015Q3

REPORT INFORMATION
  Report Type: Other
  Country: IT (occurrence: IT)
  Receive Date: 20150917
  Receipt Date: 20150917
  Transmission Date: 20151125
  Serious: Yes (Hospitalization)
  Sender: FDA-Public Use
  Company Number: IT-MYLANLABS-2015M1030407

PATIENT

DRUGS (4)
  1. ZOLPIDEM TARTRATE. [Suspect]
     Active Substance: ZOLPIDEM TARTRATE
     Indication: PRODUCT USED FOR UNKNOWN INDICATION
     Dosage: UNK
  2. DIAZEPAM. [Suspect]
     Active Substance: DIAZEPAM
     Indication: PRODUCT USED FOR UNKNOWN INDICATION
     Dosage: UNK
  3. DIAZEPAM. [Suspect]
     Active Substance: DIAZEPAM
     Dosage: 20 ML, TOTAL
     Route: 048
     Dates: start: 20150613, end: 20150613
  4. ZOLPIDEM TARTRATE. [Suspect]
     Active Substance: ZOLPIDEM TARTRATE
     Dosage: 150 MG, TOTAL
     Route: 048
     Dates: start: 20150613, end: 20150613

REACTIONS (4)
  - Drug abuse [Recovered/Resolved]
  - Intentional overdose [Unknown]
  - Asthenia [Recovered/Resolved]
  - Slow speech [Recovered/Resolved]

NARRATIVE: CASE EVENT DATE: 20150613
